FAERS Safety Report 5890158-X (Version None)
Quarter: 2008Q3

REPORT INFORMATION
  Report Type: 
  Country: None (occurrence: None)
  Receive Date: 20080919
  Receipt Date: 20080912
  Transmission Date: 20090109
  Serious: Yes (Hospitalization, Other)
  Sender: FDA-Public Use
  Company Number: JP-PFIZER INC-2008071851

PATIENT
  Age: 74 Year
  Sex: Female

DRUGS (3)
  1. SALAZOPYRIN [Suspect]
     Indication: COLITIS ULCERATIVE
     Dosage: DAILY DOSE:3GRAM
     Route: 048
     Dates: start: 20080822
  2. ADALAT [Concomitant]
     Indication: HYPERTENSION
     Route: 048
  3. DIGOSIN [Concomitant]
     Indication: ATRIAL FIBRILLATION
     Route: 048

REACTIONS (1)
  - EMBOLISM VENOUS [None]
